FAERS Safety Report 19814646 (Version 1)
Quarter: 2021Q3

REPORT INFORMATION
  Report Type: Spontaneous
  Country: VN (occurrence: VN)
  Receive Date: 20210909
  Receipt Date: 20210909
  Transmission Date: 20211014
  Serious: Yes (Death)
  Sender: FDA-Public Use
  Company Number: NVSC2021VN205128

PATIENT
  Age: 67 Year
  Sex: Female

DRUGS (1)
  1. FRAIZERON [Suspect]
     Active Substance: SECUKINUMAB
     Indication: PSORIASIS
     Dosage: 300 MG, UNKNOWN
     Route: 058
     Dates: start: 20210628, end: 20210823

REACTIONS (1)
  - Death [Fatal]

NARRATIVE: CASE EVENT DATE: 20210908
